FAERS Safety Report 10479882 (Version 1)
Quarter: 2014Q3

REPORT INFORMATION
  Report Type: Spontaneous
  Country: US (occurrence: None)
  Receive Date: 20140926
  Receipt Date: 20140926
  Transmission Date: 20150326
  Serious: Yes (Hospitalization)
  Sender: FDA-Public Use
  Company Number: None

PATIENT
  Age: 30 Year
  Sex: Male
  Weight: 113.4 kg

DRUGS (1)
  1. ATORVASTATIN [Suspect]
     Active Substance: ATORVASTATIN
     Indication: BLOOD CHOLESTEROL INCREASED
     Dosage: 80 MG 1PILL ONCE DAILY TAKEN BY MOUTH
     Route: 048
     Dates: start: 20140819, end: 20140907

REACTIONS (3)
  - Rhabdomyolysis [None]
  - Burning sensation [None]
  - Blood disorder [None]

NARRATIVE: CASE EVENT DATE: 20140906
